FAERS Safety Report 7582363-1 (Version None)
Quarter: 2011Q2

REPORT INFORMATION
  Report Type: 
  Country: None (occurrence: None)
  Receive Date: 20110623
  Receipt Date: 20110609
  Transmission Date: 20111010
  Serious: Yes (Hospitalization)
  Sender: FDA-Public Use
  Company Number: DSU-2011-04356

PATIENT
  Age: 82 Year
  Sex: Male
  Weight: 75.2971 kg

DRUGS (1)
  1. OLMESARTAN MEDOXOMIL [Suspect]
     Indication: PRODUCT USED FOR UNKNOWN INDICATION
     Dosage: 20 MG (20 MG, QD), PER ORAL
     Route: 048

REACTIONS (6)
  - COORDINATION ABNORMAL [None]
  - GAIT DISTURBANCE [None]
  - HEADACHE [None]
  - DIZZINESS [None]
  - VISION BLURRED [None]
  - FALL [None]
